FAERS Safety Report 6567036-6 (Version None)
Quarter: 2010Q1

REPORT INFORMATION
  Report Type: 
  Country: None (occurrence: None)
  Receive Date: 20100127
  Receipt Date: 20100112
  Transmission Date: 20100710
  Serious: Yes (Hospitalization)
  Sender: FDA-Public Use
  Company Number: 2010SP002574

PATIENT
  Sex: Female

DRUGS (1)
  1. MARVELON 28 (DESOGESTREL/ETHINYLESTRADIOL 00570801/) [Suspect]
     Indication: MENSTRUATION IRREGULAR
     Dosage: 1 DF;QD;PO
     Route: 048

REACTIONS (1)
  - MENSTRUATION IRREGULAR [None]
